FAERS Safety Report 10340181 (Version 5)
Quarter: 2014Q4

REPORT INFORMATION
  Report Type: Report from Study
  Country: RU (occurrence: RU)
  Receive Date: 20140724
  Receipt Date: 20141007
  Transmission Date: 20150528
  Serious: Yes (Hospitalization)
  Sender: FDA-Public Use
  Company Number: RU-BRISTOL-MYERS SQUIBB COMPANY-21237102

PATIENT
  Age: 14 Year
  Sex: Female

DRUGS (2)
  1. BIPERIDEN [Concomitant]
     Active Substance: BIPERIDEN
     Dates: start: 20131004, end: 20140514
  2. ARIPIPRAZOLE. [Suspect]
     Active Substance: ARIPIPRAZOLE
     Indication: SCHIZOPHRENIA
     Dosage: 15MAY14:10MG/DAY
     Route: 048
     Dates: start: 20130328

REACTIONS (1)
  - Schizophrenia [Recovered/Resolved with Sequelae]

NARRATIVE: CASE EVENT DATE: 20140424
